FAERS Safety Report 21743993 (Version 1)
Quarter: 2022Q4

REPORT INFORMATION
  Report Type: Report from Study
  Country: US (occurrence: US)
  Receive Date: 20221217
  Receipt Date: 20221217
  Transmission Date: 20230112
  Serious: No
  Sender: FDA-Public Use
  Company Number: US-ABBVIE-4202725

PATIENT

DRUGS (1)
  1. HUMIRA [Suspect]
     Active Substance: ADALIMUMAB
     Indication: Dermatitis atopic
     Route: 058

REACTIONS (6)
  - Rash [Unknown]
  - Rash pruritic [Unknown]
  - Rash erythematous [Unknown]
  - Skin exfoliation [Unknown]
  - Rash papular [Unknown]
  - Skin burning sensation [Unknown]
